FAERS Safety Report 7834080-8 (Version None)
Quarter: 2011Q4

REPORT INFORMATION
  Report Type: 
  Country: None (occurrence: None)
  Receive Date: 20111024
  Receipt Date: 20111024
  Transmission Date: 20120403
  Serious: Yes (Life-Threatening)
  Sender: FDA-Public Use
  Company Number: None

PATIENT
  Age: 57 Year
  Sex: Male
  Weight: 78.017 kg

DRUGS (1)
  1. KETOROLAC TROMETHAMINE [Suspect]
     Indication: PAIN
     Dosage: 10MG
     Route: 048
     Dates: start: 20110930, end: 20111005

REACTIONS (3)
  - RECTAL HAEMORRHAGE [None]
  - GASTRIC ULCER HAEMORRHAGE [None]
  - OESOPHAGEAL ULCER HAEMORRHAGE [None]
